FAERS Safety Report 8168996-2 (Version None)
Quarter: 2012Q1

REPORT INFORMATION
  Report Type: 
  Country: None (occurrence: None)
  Receive Date: 20120227
  Receipt Date: 20120217
  Transmission Date: 20120608
  Serious: Yes (Hospitalization)
  Sender: FDA-Public Use
  Company Number: PHHY2012US014086

PATIENT
  Age: 68 Year
  Sex: Male

DRUGS (5)
  1. CARBOPLATIN [Concomitant]
     Indication: SQUAMOUS CELL CARCINOMA
     Dosage: UNK UKN, UNK
  2. PACLITAXEL [Suspect]
     Indication: SQUAMOUS CELL CARCINOMA
     Dosage: 45 MG/M2, UNK
  3. CARBIDOPA + LEVODOPA [Concomitant]
     Indication: PARKINSON'S DISEASE
  4. ENTACAPONE [Concomitant]
     Indication: PARKINSON'S DISEASE
  5. PRAMIPEXOLE DIHYCHLLORIDE [Concomitant]
     Indication: PARKINSON'S DISEASE

REACTIONS (9)
  - PSYCHOTIC DISORDER [None]
  - TREMOR [None]
  - ENCEPHALOPATHY [None]
  - ABNORMAL DREAMS [None]
  - CONFUSIONAL STATE [None]
  - MENTAL STATUS CHANGES [None]
  - ABNORMAL BEHAVIOUR [None]
  - HALLUCINATION, VISUAL [None]
  - MUSCULOSKELETAL STIFFNESS [None]
